FAERS Safety Report 12412046 (Version 1)
Quarter: 2016Q2

REPORT INFORMATION
  Report Type: Spontaneous
  Country: NZ (occurrence: NZ)
  Receive Date: 20160527
  Receipt Date: 20160527
  Transmission Date: 20160815
  Serious: Yes (Other)
  Sender: FDA-Public Use
  Company Number: NZ-PFIZER INC-2016266941

PATIENT
  Age: 7 Decade
  Sex: Female

DRUGS (1)
  1. PREMIA CONTINUOUS [Suspect]
     Active Substance: ESTROGENS, CONJUGATED\MEDROXYPROGESTERONE ACETATE
     Indication: HORMONE REPLACEMENT THERAPY
     Dosage: 2.5 MG, UNK

REACTIONS (2)
  - Breast mass [Unknown]
  - Endometriosis [Unknown]
